FAERS Safety Report 5455442-2 (Version None)
Quarter: 2007Q3

REPORT INFORMATION
  Report Type: 
  Country: None (occurrence: None)
  Receive Date: 20070918
  Receipt Date: 20070330
  Transmission Date: 20080115
  Serious: Yes (Other)
  Sender: FDA-Public Use
  Company Number: US-ASTRAZENECA-2006UW21079

PATIENT
  Age: 217 Month
  Sex: Female
  Weight: 61.4 kg

DRUGS (3)
  1. SEROQUEL [Suspect]
     Indication: MOOD SWINGS
     Route: 048
     Dates: start: 20051201
  2. LAMICTAL [Concomitant]
  3. MARIJUANA [Concomitant]

REACTIONS (2)
  - KETOACIDOSIS [None]
  - TYPE 2 DIABETES MELLITUS [None]
